FAERS Safety Report 5237871-5 (Version None)
Quarter: 2007Q1

REPORT INFORMATION
  Report Type: 
  Country: None (occurrence: None)
  Receive Date: 20070214
  Receipt Date: 20070202
  Transmission Date: 20070707
  Serious: Yes (Hospitalization)
  Sender: FDA-Public Use
  Company Number: JP-BRISTOL-MYERS SQUIBB COMPANY-13674932

PATIENT
  Sex: Female

DRUGS (5)
  1. ENDOXAN [Suspect]
     Indication: CHORIOCARCINOMA
  2. ETOPOSIDE [Suspect]
  3. METHOTREXATE [Suspect]
  4. VINCRISTINE SULFATE [Suspect]
  5. DACTINOMYCIN [Suspect]

REACTIONS (1)
  - INTERSTITIAL LUNG DISEASE [None]
